FAERS Safety Report 6912192-0 (Version None)
Quarter: 2010Q3

REPORT INFORMATION
  Report Type: 
  Country: None (occurrence: None)
  Receive Date: 20100806
  Receipt Date: 20071212
  Transmission Date: 20110219
  Serious: Yes (Other)
  Sender: FDA-Public Use
  Company Number: US-PFIZER INC-2007104393

PATIENT

DRUGS (1)
  1. VORICONAZOLE [Suspect]
     Indication: CHRONIC GRANULOMATOUS DISEASE

REACTIONS (2)
  - ADRENAL INSUFFICIENCY [None]
  - SKIN DISORDER [None]
